FAERS Safety Report 8096161-6 (Version None)
Quarter: 2012Q1

REPORT INFORMATION
  Report Type: 
  Country: None (occurrence: None)
  Receive Date: 20120131
  Receipt Date: 20120126
  Transmission Date: 20120608
  Serious: Yes (Other)
  Sender: FDA-Public Use
  Company Number: IL-GLAXOSMITHKLINE-B0777740A

PATIENT
  Age: 60 Year
  Sex: Female

DRUGS (3)
  1. WELLBUTRIN [Suspect]
     Indication: PRODUCT USED FOR UNKNOWN INDICATION
     Dosage: 300MG PER DAY
     Route: 065
  2. MIRTAZAPINE [Concomitant]
     Dosage: 15MG PER DAY
  3. PROZAC [Concomitant]
     Dosage: 20MG PER DAY

REACTIONS (4)
  - HEPATIC ENZYME INCREASED [None]
  - FEELING ABNORMAL [None]
  - FATIGUE [None]
  - DRY MOUTH [None]
